FAERS Safety Report 8606711-6 (Version None)
Quarter: 2012Q3

REPORT INFORMATION
  Report Type: 
  Country: None (occurrence: None)
  Receive Date: 20120820
  Receipt Date: 20120809
  Transmission Date: 20120928
  Serious: Yes (Other)
  Sender: FDA-Public Use
  Company Number: FR-ROCHE-1100070

PATIENT
  Sex: Male
  Weight: 65 kg

DRUGS (16)
  1. MABTHERA [Suspect]
     Dates: start: 20110607, end: 20110607
  2. BACTRIM DS [Concomitant]
     Route: 048
     Dates: start: 20110216
  3. CYTARABINE [Concomitant]
  4. MABTHERA [Suspect]
     Dates: start: 20110213, end: 20110420
  5. VALACYCLOVIR HYDROCHLORIDE [Concomitant]
     Route: 048
     Dates: start: 20110216
  6. NICARDIPINE HCL [Concomitant]
     Route: 048
     Dates: start: 20111201
  7. CISPLATIN [Concomitant]
  8. CARMUSTINE [Concomitant]
  9. LYRICA [Concomitant]
     Route: 048
     Dates: start: 20110929, end: 20120531
  10. IRBESARTAN [Concomitant]
     Dosage: 75 MG/D
     Route: 048
     Dates: start: 20110321
  11. MELPHALAN HYDROCHLORIDE [Concomitant]
  12. DEXAMETHASONE [Concomitant]
     Indication: RHEUMATOID ARTHRITIS
     Route: 042
     Dates: start: 20110804
  13. ETOPOSIDE [Concomitant]
  14. MABTHERA [Suspect]
     Indication: RHEUMATOID ARTHRITIS
     Dosage: LAST DOSE PROR TO SAE 31/MAY/2012
     Route: 041
     Dates: start: 20110804
  15. BACTRIM DS [Concomitant]
     Dates: start: 20110321
  16. CYTARABINE [Concomitant]
     Dates: start: 20110210, end: 20110420

REACTIONS (1)
  - MIXED LIVER INJURY [None]
